FAERS Safety Report 6712569-2 (Version None)
Quarter: 2010Q2

REPORT INFORMATION
  Report Type: 
  Country: None (occurrence: None)
  Receive Date: 20100506
  Receipt Date: 20100426
  Transmission Date: 20101027
  Serious: Yes (Other)
  Sender: FDA-Public Use
  Company Number: US-BAYER-201020796NA

PATIENT
  Sex: Female

DRUGS (1)
  1. YASMIN [Suspect]
     Indication: DRUG USE FOR UNKNOWN INDICATION
     Route: 048
     Dates: start: 20040101, end: 20070101

REACTIONS (6)
  - ABDOMINAL PAIN UPPER [None]
  - ARRHYTHMIA [None]
  - CHEST PAIN [None]
  - CHOLELITHIASIS [None]
  - DYSPNOEA [None]
  - PALPITATIONS [None]
